FAERS Safety Report 26105234 (Version 1)
Quarter: 2025Q4

REPORT INFORMATION
  Report Type: Report from Study
  Country: CA (occurrence: CA)
  Receive Date: 20251201
  Receipt Date: 20251201
  Transmission Date: 20260117
  Serious: Yes (Hospitalization)
  Sender: JOHNSON AND JOHNSON
  Company Number: CA-JNJFOC-20251145514

PATIENT
  Age: 67 Year
  Sex: Female

DRUGS (3)
  1. EPOPROSTENOL [Suspect]
     Active Substance: EPOPROSTENOL
     Indication: Pulmonary hypertension
     Route: 042
     Dates: start: 20220530
  2. OPSUMIT [Suspect]
     Active Substance: MACITENTAN
     Indication: Pulmonary hypertension
     Route: 048
     Dates: start: 20211223
  3. ADCIRCA [Concomitant]
     Active Substance: TADALAFIL
     Indication: Product used for unknown indication

REACTIONS (6)
  - Device related infection [Unknown]
  - Device leakage [Unknown]
  - Haemorrhage [Unknown]
  - Incorrect dose administered by device [Unknown]
  - Product administration interrupted [Unknown]
  - Arterial catheterisation [Unknown]

NARRATIVE: CASE EVENT DATE: 20251102
